FAERS Safety Report 16444815 (Version 1)
Quarter: 2019Q2

REPORT INFORMATION
  Report Type: Spontaneous
  Country: MY (occurrence: MY)
  Receive Date: 20190618
  Receipt Date: 20190618
  Transmission Date: 20190711
  Serious: Yes (Death, Other)
  Sender: FDA-Public Use
  Company Number: MY-SA-2019SA136524

PATIENT
  Age: 6 Month
  Weight: 5.7 kg

DRUGS (5)
  1. HYDROCORTISONE. [Concomitant]
     Active Substance: HYDROCORTISONE
     Indication: PREMEDICATION
     Dosage: 25 MG
     Route: 042
     Dates: start: 20190423, end: 20190423
  2. MYOZYME [Suspect]
     Active Substance: ALGLUCOSIDASE ALFA
     Indication: GLYCOGEN STORAGE DISEASE TYPE II
     Dosage: 50 MG, QOW
     Route: 041
     Dates: start: 20190131, end: 201904
  3. MYOZYME [Suspect]
     Active Substance: ALGLUCOSIDASE ALFA
     Dosage: 50 MG, QOW
     Route: 041
     Dates: start: 20190417, end: 2019
  4. MYOZYME [Suspect]
     Active Substance: ALGLUCOSIDASE ALFA
     Dosage: 50 MG, QOW
     Route: 041
     Dates: start: 20190423, end: 20190423
  5. CETRIZINE [Concomitant]
     Active Substance: CETIRIZINE HYDROCHLORIDE
     Indication: PREMEDICATION
     Dosage: 2.5 MG
     Route: 048

REACTIONS (2)
  - Death [Fatal]
  - Rash generalised [Unknown]

NARRATIVE: CASE EVENT DATE: 201904
